FAERS Safety Report 19118805 (Version 1)
Quarter: 2021Q2

REPORT INFORMATION
  Report Type: Other
  Country: JP (occurrence: JP)
  Receive Date: 20210409
  Receipt Date: 20210409
  Transmission Date: 20210717
  Serious: Yes (Other)
  Sender: FDA-Public Use
  Company Number: JP-ROCHE-2808041

PATIENT
  Age: 5 Year
  Sex: Female

DRUGS (3)
  1. BEVACIZUMAB. [Suspect]
     Active Substance: BEVACIZUMAB
     Indication: RETINOPATHY OF PREMATURITY
     Dosage: TOTAL VOLUME, 0.025 ML
     Route: 050
  2. XYLOCAINE [Concomitant]
     Active Substance: LIDOCAINE HYDROCHLORIDE
     Indication: ANAESTHESIA
     Route: 047
  3. POVIDONE?IODINE. [Concomitant]
     Active Substance: POVIDONE-IODINE

REACTIONS (3)
  - Off label use [Unknown]
  - Retinal detachment [Unknown]
  - Retinal tear [Unknown]
